FAERS Safety Report 10879439 (Version 1)
Quarter: 2015Q1

REPORT INFORMATION
  Report Type: Spontaneous
  Country: US (occurrence: None)
  Receive Date: 20150224
  Receipt Date: 20150224
  Transmission Date: 20150721
  Serious: Yes (Hospitalization)
  Sender: FDA-Public Use
  Company Number: None

PATIENT
  Age: 3 Year
  Sex: Female
  Weight: 16.3 kg

DRUGS (2)
  1. CYCLOPHOSPHAMIDE. [Suspect]
     Active Substance: CYCLOPHOSPHAMIDE
  2. CYTARABINE. [Suspect]
     Active Substance: CYTARABINE

REACTIONS (3)
  - Neutropenia [None]
  - Pyrexia [None]
  - Lobar pneumonia [None]

NARRATIVE: CASE EVENT DATE: 20150213
